FAERS Safety Report 11421818 (Version 1)
Quarter: 2015Q3

REPORT INFORMATION
  Report Type: Spontaneous
  Country: NO (occurrence: NO)
  Receive Date: 20150827
  Receipt Date: 20150827
  Transmission Date: 20151125
  Serious: Yes (Hospitalization)
  Sender: FDA-Public Use
  Company Number: NO-ROCHE-1625912

PATIENT
  Sex: Male

DRUGS (7)
  1. SOMAC [Concomitant]
     Active Substance: PANTOPRAZOLE SODIUM
     Indication: PROPHYLAXIS AGAINST GASTROINTESTINAL ULCER
     Route: 048
  2. STESOLID [Concomitant]
     Active Substance: DIAZEPAM
     Indication: EPILEPSY
     Dosage: 5-10 MG AS NEEDED
     Route: 048
  3. ZELBORAF [Suspect]
     Active Substance: VEMURAFENIB
     Indication: MALIGNANT MELANOMA
     Route: 048
     Dates: start: 201501
  4. MEDROL [Concomitant]
     Active Substance: METHYLPREDNISOLONE
     Indication: CEREBRAL OEDEMA MANAGEMENT
     Route: 048
  5. FRAGMIN [Concomitant]
     Active Substance: DALTEPARIN SODIUM
     Indication: THROMBOSIS PROPHYLAXIS
     Route: 058
     Dates: start: 20150701, end: 20150701
  6. IBUX [Concomitant]
     Active Substance: IBUPROFEN
     Indication: PAIN
     Dosage: 400 MG X2 AS NEEDED
     Route: 048
  7. PARALGIN FORTE (CODEINE PHOSPHATE/PARACETAMOL) [Concomitant]
     Indication: PAIN
     Dosage: 1 DF X3 AS NEEDED
     Route: 048

REACTIONS (1)
  - Facial operation [Not Recovered/Not Resolved]
